FAERS Safety Report 8380694-9 (Version None)
Quarter: 2012Q1

REPORT INFORMATION
  Report Type: 
  Country: None (occurrence: None)
  Receive Date: 20120323
  Receipt Date: 20110427
  Transmission Date: 20120608
  Serious: Yes (Hospitalization, Other)
  Sender: FDA-Public Use
  Company Number: 163-21880-11040585

PATIENT
  Age: 59 Year
  Sex: Male
  Weight: 93.9 kg

DRUGS (1)
  1. REVLIMID [Suspect]
     Indication: MULTIPLE MYELOMA
     Dosage: 25 MG, DAILY X 14 DAYS/OFF 7 DAYS, PO
     Route: 048
     Dates: start: 20110114

REACTIONS (6)
  - DIARRHOEA [None]
  - OEDEMA PERIPHERAL [None]
  - PYREXIA [None]
  - PLATELET COUNT DECREASED [None]
  - WHITE BLOOD CELL COUNT DECREASED [None]
  - NEUTROPHIL COUNT DECREASED [None]
